FAERS Safety Report 11868144 (Version 2)
Quarter: 2015Q4

REPORT INFORMATION
  Report Type: Report from Study
  Country: US (occurrence: US)
  Receive Date: 20151224
  Receipt Date: 20151229
  Transmission Date: 20160305
  Serious: Yes (Hospitalization)
  Sender: FDA-Public Use
  Company Number: US-ACTELION-A-NJ2015-129157

PATIENT
  Age: 75 Year
  Sex: Female

DRUGS (5)
  1. VENTAVIS [Suspect]
     Active Substance: ILOPROST
     Indication: PULMONARY ARTERIAL HYPERTENSION
     Dosage: 5 MCG, 6-9 INH/DAILY
     Route: 055
     Dates: start: 20120409
  2. LOPRESSOR [Concomitant]
     Active Substance: METOPROLOL TARTRATE
     Dosage: UNK
  3. ELIQUIS [Concomitant]
     Active Substance: APIXABAN
  4. OXYGEN. [Concomitant]
     Active Substance: OXYGEN
  5. LOPRESSOR [Concomitant]
     Active Substance: METOPROLOL TARTRATE
     Dosage: 200 MG, SINGLE
     Route: 042

REACTIONS (7)
  - Arterial stent insertion [Recovered/Resolved]
  - Intermittent claudication [Unknown]
  - Iliac artery occlusion [Recovered/Resolved]
  - Fatigue [Unknown]
  - Femoral artery occlusion [Recovered/Resolved]
  - Atrial fibrillation [Recovered/Resolved]
  - Concomitant disease aggravated [Unknown]
